FAERS Safety Report 5140172-7 (Version None)
Quarter: 2006Q4

REPORT INFORMATION
  Report Type: 
  Country: None (occurrence: None)
  Receive Date: 20061031
  Receipt Date: 20060907
  Transmission Date: 20070319
  Serious: Yes (Hospitalization)
  Sender: FDA-Public Use
  Company Number: GB-BRISTOL-MYERS SQUIBB COMPANY-13502570

PATIENT
  Age: 5 Decade
  Sex: Female
  Weight: 90 kg

DRUGS (3)
  1. ABILIFY [Suspect]
     Indication: SCHIZOPHRENIA
     Dates: start: 20060607, end: 20060609
  2. BENZODIAZEPINES [Concomitant]
  3. SERTRALINE [Concomitant]
     Indication: DEPRESSION
     Dates: start: 20010101, end: 20060101

REACTIONS (1)
  - PSYCHOTIC DISORDER [None]
